FAERS Safety Report 4932405-4 (Version None)
Quarter: 2006Q1

REPORT INFORMATION
  Report Type: 
  Country: None (occurrence: None)
  Receive Date: 20060228
  Receipt Date: 20060217
  Transmission Date: 20060701
  Serious: Yes (Other)
  Sender: FDA-Public Use
  Company Number: GBWYE404517FEB06

PATIENT
  Age: 59 Year
  Sex: Male

DRUGS (10)
  1. RAPAMUNE [Suspect]
     Indication: HEART TRANSPLANT
  2. PREDNISOLONE [Concomitant]
  3. ANTITHYMOCYTE IMMUNOGLOBULIN [Concomitant]
  4. ASPIRIN [Concomitant]
  5. PRAVASTATIN [Concomitant]
  6. AZATHIOPRINE [Suspect]
     Indication: HEART TRANSPLANT
  7. CYCLOSPORINE [Suspect]
     Indication: HEART TRANSPLANT
  8. AMLODIPINE [Concomitant]
  9. ENALAPRIL MALEATE [Concomitant]
  10. BENDROFLUAZIDE (BENDROFLUMETHIAZIDE) [Concomitant]

REACTIONS (6)
  - CORONARY ARTERY DISEASE [None]
  - CORONARY ARTERY STENOSIS [None]
  - GRANULOMA [None]
  - PNEUMONITIS [None]
  - RENAL IMPAIRMENT [None]
  - SCAR [None]
